FAERS Safety Report 5308650-5 (Version None)
Quarter: 2007Q2

REPORT INFORMATION
  Report Type: 
  Country: None (occurrence: None)
  Receive Date: 20070426
  Receipt Date: 20070420
  Transmission Date: 20071010
  Serious: Yes (Hospitalization)
  Sender: FDA-Public Use
  Company Number: 2007UW07639

PATIENT
  Age: 47 Year
  Sex: Female
  Weight: 118.4 kg

DRUGS (25)
  1. TENORMIN [Suspect]
     Route: 048
     Dates: start: 20030101, end: 20050907
  2. TENORMIN [Suspect]
     Route: 048
     Dates: start: 20050907, end: 20051017
  3. TENORMIN [Suspect]
     Route: 048
     Dates: start: 20051018
  4. FENTANYL [Suspect]
     Route: 002
     Dates: start: 20050525
  5. LIORESAL [Suspect]
     Route: 048
     Dates: start: 19950101
  6. KLONOPIN [Suspect]
     Route: 048
     Dates: start: 20040101, end: 20050613
  7. KLONOPIN [Suspect]
     Route: 048
     Dates: start: 20040101, end: 20050613
  8. KLONOPIN [Suspect]
     Route: 048
     Dates: start: 20050613, end: 20051117
  9. KLONOPIN [Suspect]
     Route: 048
     Dates: start: 20050613, end: 20051117
  10. KLONOPIN [Suspect]
     Route: 048
     Dates: start: 20051117, end: 20051128
  11. KLONOPIN [Suspect]
     Route: 048
     Dates: start: 20051117, end: 20051128
  12. KLONOPIN [Suspect]
     Route: 048
     Dates: start: 20051128
  13. KLONOPIN [Suspect]
     Route: 048
     Dates: start: 20051128
  14. METHADONE HCL [Suspect]
     Route: 048
     Dates: start: 20020101, end: 20060609
  15. METHADONE HCL [Suspect]
     Route: 048
     Dates: start: 20060609, end: 20061127
  16. METHADONE HCL [Suspect]
     Route: 048
     Dates: start: 20061127
  17. FLEXERIL [Suspect]
  18. PROTONIX [Concomitant]
     Dates: start: 20030101
  19. IBUPROFEN [Concomitant]
     Dates: start: 19950101
  20. ALBUTEROL [Concomitant]
     Dates: start: 20030101
  21. TRAZODONE HCL [Concomitant]
     Dates: start: 20050724
  22. CELEXA [Concomitant]
     Dates: start: 20051117
  23. AMITRIPTYLINE HCL [Concomitant]
     Dates: start: 20060829
  24. TOPAMAX [Concomitant]
     Dates: start: 20061101
  25. PERCOCET [Concomitant]
     Dates: start: 20050413

REACTIONS (6)
  - DEPRESSED LEVEL OF CONSCIOUSNESS [None]
  - FATIGUE [None]
  - HYPOTENSION [None]
  - MULTIPLE DRUG OVERDOSE ACCIDENTAL [None]
  - PNEUMONIA [None]
  - SOMNOLENCE [None]
